FAERS Safety Report 15154824 (Version 2)
Quarter: 2020Q1

REPORT INFORMATION
  Report Type: Spontaneous
  Country: ES (occurrence: ES)
  Receive Date: 20180717
  Receipt Date: 20200304
  Transmission Date: 20200409
  Serious: Yes (Hospitalization)
  Sender: FDA-Public Use
  Company Number: ES-TEVA-2018-ES-928181

PATIENT
  Age: 64 Year
  Sex: Female

DRUGS (9)
  1. DOXORUBICINA (202A) [Suspect]
     Active Substance: DOXORUBICIN HYDROCHLORIDE
     Indication: HODGKIN^S DISEASE
     Route: 041
     Dates: start: 2010, end: 2011
  2. BUSULFANO (76A) [Suspect]
     Active Substance: BUSULFAN
     Indication: HODGKIN^S DISEASE
     Dosage: SP (GEMBUMEL)
     Route: 042
     Dates: start: 20121130, end: 20130220
  3. GEMCITABINE. [Suspect]
     Active Substance: GEMCITABINE
     Indication: HODGKIN^S DISEASE
     Dosage: SP (GEMBUMENL)
     Route: 065
     Dates: start: 20121130, end: 20130220
  4. VINBLASTINA (807A) [Suspect]
     Active Substance: VINBLASTINE
     Indication: HODGKIN^S DISEASE
     Route: 042
     Dates: start: 2010, end: 2011
  5. DACARBAZINA (171A) [Suspect]
     Active Substance: DACARBAZINE
     Indication: HODGKIN^S DISEASE
     Route: 042
     Dates: start: 2010, end: 2011
  6. ARAVA [Suspect]
     Active Substance: LEFLUNOMIDE
     Indication: RHEUMATOID ARTHRITIS
     Dosage: SP
     Route: 048
     Dates: start: 20140901, end: 20150201
  7. METHOTREXATE. [Suspect]
     Active Substance: METHOTREXATE
     Indication: RHEUMATOID ARTHRITIS
     Dosage: 7,5 MG DIA
     Route: 048
     Dates: start: 20140701, end: 20140901
  8. MELFALAN (403A) [Suspect]
     Active Substance: MELPHALAN
     Indication: HODGKIN^S DISEASE
     Dosage: SP (GEMBUMEL)
     Route: 042
     Dates: start: 20121130, end: 20130220
  9. BLEOMICINA (68A) [Suspect]
     Active Substance: BLEOMYCIN SULFATE
     Indication: HODGKIN^S DISEASE
     Dates: start: 2010, end: 2011

REACTIONS (1)
  - Myelodysplastic syndrome [Not Recovered/Not Resolved]

NARRATIVE: CASE EVENT DATE: 20150214
